FAERS Safety Report 5273583-X (Version None)
Quarter: 2007Q1

REPORT INFORMATION
  Report Type: 
  Country: None (occurrence: None)
  Receive Date: 20070321
  Receipt Date: 20070321
  Transmission Date: 20070707
  Serious: Yes (Life-Threatening, Hospitalization)
  Sender: FDA-Public Use
  Company Number: None

PATIENT
  Age: 13 Year
  Sex: Female

DRUGS (1)
  1. ADVAIR DISKUS 100/50 [Suspect]
     Indication: HYPERSENSITIVITY

REACTIONS (6)
  - ANOREXIA [None]
  - DIALYSIS [None]
  - EAR INFECTION [None]
  - IMMUNOSUPPRESSION [None]
  - LETHARGY [None]
  - RENAL FAILURE [None]
